FAERS Safety Report 4421190-0 (Version None)
Quarter: 2004Q3

REPORT INFORMATION
  Report Type: 
  Country: None (occurrence: None)
  Receive Date: 20040809
  Receipt Date: 20040803
  Transmission Date: 20050211
  Serious: Yes (Hospitalization)
  Sender: FDA-Public Use
  Company Number: PHBS2004CN10169

PATIENT
  Age: 21 Year
  Sex: Male

DRUGS (1)
  1. TEGRETOL [Suspect]
     Indication: EPILEPSY
     Dosage: 200 MG, TID
     Route: 048
     Dates: start: 19970512, end: 19970515

REACTIONS (8)
  - ALBUMINURIA [None]
  - CARDIAC FAILURE [None]
  - DERMATITIS EXFOLIATIVE [None]
  - MELAENA [None]
  - OLIGURIA [None]
  - PYREXIA [None]
  - RASH ERYTHEMATOUS [None]
  - RESPIRATORY FAILURE [None]
